FAERS Safety Report 5344067-5 (Version None)
Quarter: 2007Q2

REPORT INFORMATION
  Report Type: 
  Country: None (occurrence: None)
  Receive Date: 20070604
  Receipt Date: 20070601
  Transmission Date: 20071010
  Serious: Yes (Death, Other)
  Sender: FDA-Public Use
  Company Number: B0398575A

PATIENT
  Age: 30 Year
  Sex: Male

DRUGS (8)
  1. ZIAGEN [Suspect]
     Indication: HIV INFECTION
     Dosage: 300MG TWICE PER DAY
     Route: 048
     Dates: start: 19990329, end: 20050715
  2. VIDEX EC [Suspect]
     Indication: HIV INFECTION
     Dosage: 250MG PER DAY
     Route: 048
     Dates: start: 20010421, end: 20050715
  3. KALETRA [Suspect]
     Indication: HIV INFECTION
     Dosage: 6CAP PER DAY
     Route: 048
     Dates: start: 20020304, end: 20050715
  4. ATAZANAVIR SULFATE [Suspect]
     Indication: HIV INFECTION
     Dosage: 300MG PER DAY
     Route: 048
     Dates: start: 20041008, end: 20050715
  5. VIREAD [Suspect]
     Indication: ACQUIRED IMMUNODEFICIENCY SYNDROME
     Route: 048
     Dates: start: 20040528, end: 20041004
  6. ZERIT [Concomitant]
     Indication: ACQUIRED IMMUNODEFICIENCY SYNDROME
     Dosage: 40MG TWICE PER DAY
     Route: 048
     Dates: start: 19980114, end: 20040527
  7. RECOMBINATE [Concomitant]
     Indication: FACTOR VIII DEFICIENCY
     Route: 058
     Dates: end: 20050715
  8. SEROSTIM [Concomitant]
     Indication: WEIGHT DECREASED
     Route: 042
     Dates: start: 20050523, end: 20050620

REACTIONS (7)
  - ERYTHEMA [None]
  - HAEMORRHAGE INTRACRANIAL [None]
  - HYPERTHERMIA [None]
  - NASOPHARYNGITIS [None]
  - PLATELET COUNT DECREASED [None]
  - RASH [None]
  - THROMBOCYTOPENIA [None]
